FAERS Safety Report 12092188 (Version 4)
Quarter: 2016Q2

REPORT INFORMATION
  Report Type: Spontaneous
  Country: US (occurrence: US)
  Receive Date: 20160219
  Receipt Date: 20160415
  Transmission Date: 20160815
  Serious: Yes (Other)
  Sender: FDA-Public Use
  Company Number: US-PFIZER INC-2016081998

PATIENT
  Age: 82 Year
  Sex: Male
  Weight: 69 kg

DRUGS (10)
  1. ATENOLOL. [Concomitant]
     Active Substance: ATENOLOL
     Indication: BLOOD PRESSURE ABNORMAL
     Dosage: UNK, 1X/DAY, (1 DAY)
     Dates: start: 1987
  2. LATANOPROST. [Suspect]
     Active Substance: LATANOPROST
     Dosage: UNK
  3. LATANOPROST. [Suspect]
     Active Substance: LATANOPROST
     Indication: GLAUCOMA
     Dosage: 2GTT, 1X/DAY, (0.05%) (1 GTT TO OU QHS)
     Route: 047
     Dates: start: 201404
  4. TIMOLOL SANDOZ [Suspect]
     Active Substance: TIMOLOL
     Indication: GLAUCOMA
     Dosage: 2 GTT, 1X/DAY, (1 GTT OU QAM) (0.05%)
     Route: 047
     Dates: start: 2014
  5. TIMOLOL SANDOZ [Suspect]
     Active Substance: TIMOLOL
     Indication: INTRAOCULAR PRESSURE INCREASED
     Dosage: UNK
  6. VOLTAREN [Concomitant]
     Active Substance: DICLOFENAC SODIUM
     Indication: ARTHRITIS
     Dosage: UNK, 2X/DAY
     Dates: start: 1987
  7. PROSCAR [Concomitant]
     Active Substance: FINASTERIDE
     Indication: PROSTATE CANCER
     Dosage: UNK
     Dates: start: 20130930
  8. ASPIRIN. [Concomitant]
     Active Substance: ASPIRIN
     Indication: PROPHYLAXIS
     Dosage: UNK
  9. LISINOPRIL. [Concomitant]
     Active Substance: LISINOPRIL
     Indication: BLOOD PRESSURE ABNORMAL
     Dosage: UNK, 2X/DAY
     Dates: start: 1987
  10. NEXIUM [Concomitant]
     Active Substance: ESOMEPRAZOLE MAGNESIUM
     Indication: GASTROOESOPHAGEAL REFLUX DISEASE
     Dosage: 75 MG, 1X/DAY, (MORNING)
     Dates: start: 2000

REACTIONS (20)
  - Drug ineffective [Unknown]
  - Throat lesion [Not Recovered/Not Resolved]
  - Erythema [Unknown]
  - Eye irritation [Not Recovered/Not Resolved]
  - Eye discharge [Not Recovered/Not Resolved]
  - Oral pain [Not Recovered/Not Resolved]
  - Pharyngeal oedema [Unknown]
  - Oropharyngeal pain [Not Recovered/Not Resolved]
  - Dysphagia [Unknown]
  - Pharyngitis [Unknown]
  - Laryngeal pain [Not Recovered/Not Resolved]
  - Intraocular pressure increased [Unknown]
  - Inflammation [Unknown]
  - Nasal discomfort [Unknown]
  - Sleep disorder [Unknown]
  - Lacrimation increased [Not Recovered/Not Resolved]
  - Throat irritation [Unknown]
  - Nasopharyngeal reflux [Unknown]
  - Dry mouth [Unknown]
  - Snoring [Unknown]

NARRATIVE: CASE EVENT DATE: 2014
